FAERS Safety Report 16946446 (Version 2)
Quarter: 2020Q1

REPORT INFORMATION
  Report Type: Report from Study
  Country: US (occurrence: US)
  Receive Date: 20191022
  Receipt Date: 20200211
  Transmission Date: 20200409
  Serious: Yes (Other)
  Sender: FDA-Public Use
  Company Number: US-BAUSCH-BL-2019-058240

PATIENT
  Age: 41 Year
  Sex: Male
  Weight: 138.47 kg

DRUGS (2)
  1. SILIQ [Suspect]
     Active Substance: BRODALUMAB
     Dosage: PFS: PRE-FILLED SYRINGE (210 MG/ 1.5 ML) AS DIRECTED
     Route: 058
     Dates: start: 2019, end: 20200110
  2. SILIQ [Suspect]
     Active Substance: BRODALUMAB
     Indication: PSORIASIS
     Dosage: PFS: PRE-FILLED SYRINGE (210 MG/ 1.5 ML) AS DIRECTED
     Route: 058
     Dates: start: 201902, end: 201909

REACTIONS (6)
  - Intentional product use issue [Unknown]
  - Varicose vein [Unknown]
  - Psoriasis [Not Recovered/Not Resolved]
  - Disease recurrence [Not Recovered/Not Resolved]
  - Product dose omission [Unknown]
  - Inappropriate schedule of product administration [Unknown]

NARRATIVE: CASE EVENT DATE: 201902
